FAERS Safety Report 7402402-8 (Version None)
Quarter: 2011Q2

REPORT INFORMATION
  Report Type: 
  Country: None (occurrence: None)
  Receive Date: 20110408
  Receipt Date: 20110325
  Transmission Date: 20111010
  Serious: Yes (Hospitalization)
  Sender: FDA-Public Use
  Company Number: US-JNJFOC-20110311526

PATIENT
  Age: 3 Month
  Sex: Male
  Weight: 3.08 kg

DRUGS (2)
  1. REMICADE [Suspect]
     Indication: DRUG EXPOSURE VIA BREAST MILK
     Route: 042
  2. REMICADE [Suspect]
     Indication: DRUG EXPOSURE DURING PREGNANCY
     Route: 042

REACTIONS (3)
  - MALAISE [None]
  - LOWER RESPIRATORY TRACT INFECTION [None]
  - BREAST FEEDING [None]
